FAERS Safety Report 5030208-6 (Version None)
Quarter: 2006Q2

REPORT INFORMATION
  Report Type: 
  Country: None (occurrence: None)
  Receive Date: 20060620
  Receipt Date: 20060608
  Transmission Date: 20061013
  Serious: Yes (Hospitalization)
  Sender: FDA-Public Use
  Company Number: US-BRISTOL-MYERS SQUIBB COMPANY-13405733

PATIENT
  Age: 47 Year
  Sex: Male

DRUGS (7)
  1. ABILIFY [Suspect]
     Indication: BIPOLAR DISORDER
  2. MIRAPEX [Concomitant]
  3. TOPAMAX [Concomitant]
  4. TEMAZEPAM [Concomitant]
  5. FLEXERIL [Concomitant]
  6. VERAPAMIL [Concomitant]
  7. HISTAMINE [Concomitant]

REACTIONS (1)
  - CARDIOMYOPATHY [None]
